FAERS Safety Report 18266590 (Version 1)
Quarter: 2020Q3

REPORT INFORMATION
  Report Type: Spontaneous
  Country: US (occurrence: US)
  Receive Date: 20200915
  Receipt Date: 20200915
  Transmission Date: 20201103
  Serious: Yes (Other)
  Sender: FDA-Public Use
  Company Number: US-CIPLA LTD.-2020US06502

PATIENT

DRUGS (3)
  1. GABAPENTIN. [Suspect]
     Active Substance: GABAPENTIN
     Dosage: DOSE REDUCED TO 300 MG
     Route: 065
  2. GABAPENTIN. [Suspect]
     Active Substance: GABAPENTIN
     Dosage: 100 MILLIGRAM, TID
     Route: 048
     Dates: start: 20200826
  3. GABAPENTIN. [Suspect]
     Active Substance: GABAPENTIN
     Indication: NEUROPATHY PERIPHERAL
     Dosage: UNK
     Route: 065

REACTIONS (29)
  - Suicidal ideation [Recovered/Resolved]
  - Product packaging issue [Unknown]
  - Emotional disorder [Recovering/Resolving]
  - Withdrawal syndrome [Recovering/Resolving]
  - Product barcode issue [Unknown]
  - Suspected counterfeit product [Unknown]
  - Crying [Recovering/Resolving]
  - Malaise [Recovering/Resolving]
  - Nausea [Recovering/Resolving]
  - Headache [Recovering/Resolving]
  - Hyperhidrosis [Recovering/Resolving]
  - Central nervous system infection [Recovering/Resolving]
  - Pain [Recovering/Resolving]
  - Auditory disorder [Recovering/Resolving]
  - Hot flush [Recovering/Resolving]
  - Fatigue [Recovering/Resolving]
  - Off label use [Unknown]
  - Visual impairment [Recovering/Resolving]
  - Gastric disorder [Unknown]
  - Product size issue [Unknown]
  - Chills [Recovering/Resolving]
  - Hyperacusis [Recovering/Resolving]
  - Muscle spasms [Recovering/Resolving]
  - Decreased appetite [Recovering/Resolving]
  - Mood altered [Recovering/Resolving]
  - Irritability [Recovering/Resolving]
  - Tinnitus [Recovering/Resolving]
  - Product use in unapproved indication [Unknown]
  - Vomiting [Recovering/Resolving]

NARRATIVE: CASE EVENT DATE: 2019
